FAERS Safety Report 23073181 (Version 2)
Quarter: 2023Q4

REPORT INFORMATION
  Report Type: Spontaneous
  Country: US (occurrence: US)
  Receive Date: 20231017
  Receipt Date: 20231019
  Transmission Date: 20240110
  Serious: No
  Sender: FDA-Public Use
  Company Number: US-BRISTOL-MYERS SQUIBB COMPANY-2023-147097

PATIENT
  Age: 81 Year
  Sex: Male
  Weight: 57.61 kg

DRUGS (1)
  1. POMALYST [Suspect]
     Active Substance: POMALIDOMIDE
     Indication: Plasma cell myeloma
     Dosage: FREQUENCY: ONCE DAILY FOR 7 DAYS ON THEN 7 DAYS OFF
     Route: 048

REACTIONS (3)
  - Neutrophil count decreased [Recovering/Resolving]
  - Off label use [Unknown]
  - Laboratory test abnormal [Unknown]
